FAERS Safety Report 6494796-5 (Version None)
Quarter: 2009Q4

REPORT INFORMATION
  Report Type: 
  Country: None (occurrence: None)
  Receive Date: 20091214
  Receipt Date: 20090715
  Transmission Date: 20100525
  Serious: No
  Sender: FDA-Public Use
  Company Number: US-BRISTOL-MYERS SQUIBB COMPANY-14562375

PATIENT
  Age: 32 Year
  Sex: Male
  Weight: 82 kg

DRUGS (3)
  1. ABILIFY [Suspect]
     Indication: BIPOLAR DISORDER
     Dosage: 5MG TAB: NDC #:59148-007-13,LOT #:8M29337A,EXP:DEC2011. 10MG 1 TAB REDUCED TO 5MG TABS/D
     Dates: start: 20090301
  2. DEPAKOTE [Concomitant]
  3. TRAZODONE HCL [Concomitant]
     Dosage: QD BEDTIME,TAKEN ABOUT 6 MONTHS

REACTIONS (2)
  - DRUG INEFFECTIVE [None]
  - HEADACHE [None]
